FAERS Safety Report 6516265-6 (Version None)
Quarter: 2009Q4

REPORT INFORMATION
  Report Type: 
  Country: None (occurrence: None)
  Receive Date: 20091215
  Receipt Date: 20090826
  Transmission Date: 20100525
  Serious: Yes (Hospitalization)
  Sender: FDA-Public Use
  Company Number: 653018

PATIENT
  Sex: Male

DRUGS (2)
  1. TICLID [Suspect]
     Indication: ANTICOAGULANT THERAPY
     Dosage: 2 PER DAY ORAL
     Route: 048
  2. PLETAL [Suspect]
     Indication: DRUG USE FOR UNKNOWN INDICATION

REACTIONS (2)
  - NEUTROPENIA [None]
  - THROMBOSIS IN DEVICE [None]
